FAERS Safety Report 8875801 (Version 1)
Quarter: 2012Q4

REPORT INFORMATION
  Report Type: 
  Country: US (occurrence: US)
  Receive Date: 20121030
  Receipt Date: 20121030
  Transmission Date: 20130627
  Serious: Yes (Other)
  Sender: FDA-Public Use
  Company Number: US-GLAXOSMITHKLINE-A0995977A

PATIENT
  Age: 75 Year
  Sex: Female

DRUGS (9)
  1. VUSION [Suspect]
     Indication: RASH
     Route: 061
     Dates: start: 201207, end: 20120930
  2. CLOPIDOGREL [Concomitant]
  3. CRESTOR [Concomitant]
  4. COREG [Concomitant]
  5. SYNTHROID [Concomitant]
  6. CELEBREX [Concomitant]
  7. MIRAPEX [Concomitant]
  8. NORTRIPTYLINE [Concomitant]
  9. PRAVASTATIN [Concomitant]

REACTIONS (9)
  - Superinfection fungal [Unknown]
  - Pyrexia [Unknown]
  - Nausea [Unknown]
  - Weight decreased [Unknown]
  - Decreased appetite [Unknown]
  - Flushing [Unknown]
  - Erythema [Unknown]
  - Intertrigo [Unknown]
  - Burning sensation [Unknown]
